FAERS Safety Report 5819195-8 (Version None)
Quarter: 2008Q3

REPORT INFORMATION
  Report Type: 
  Country: None (occurrence: None)
  Receive Date: 20080723
  Receipt Date: 20080716
  Transmission Date: 20090109
  Serious: Yes (Other)
  Sender: FDA-Public Use
  Company Number: B0530191A

PATIENT
  Age: 49 Year
  Sex: Female

DRUGS (1)
  1. ALKERAN [Suspect]
     Dosage: 100MG PER DAY
     Route: 042
     Dates: start: 20071216, end: 20071217

REACTIONS (3)
  - BONE MARROW FAILURE [None]
  - MUCOSAL INFLAMMATION [None]
  - NAUSEA [None]
